FAERS Safety Report 9914710 (Version 2)
Quarter: 2014Q1

REPORT INFORMATION
  Report Type: Report from Study
  Country: US (occurrence: US)
  Receive Date: 20140220
  Receipt Date: 20140220
  Transmission Date: 20141002
  Serious: Yes (Hospitalization)
  Sender: FDA-Public Use
  Company Number: US-ABBVIE-13P-163-1031022-00

PATIENT
  Age: 50 Year
  Sex: Female
  Weight: 106.69 kg

DRUGS (6)
  1. HUMIRA [Suspect]
     Indication: CROHN^S DISEASE
     Route: 058
     Dates: start: 20111214, end: 201211
  2. HUMIRA [Suspect]
     Route: 058
     Dates: start: 2012, end: 2012
  3. UNKNOWN MEDICATION [Concomitant]
     Indication: DIURETIC THERAPY
  4. PREDNISONE [Concomitant]
     Indication: CROHN^S DISEASE
  5. HYDROCODONE [Concomitant]
     Indication: PAIN
  6. HYDROCODONE [Concomitant]
     Indication: CROHN^S DISEASE

REACTIONS (7)
  - Intestinal ulcer [Recovered/Resolved]
  - Fistula [Recovered/Resolved]
  - Crohn^s disease [Recovering/Resolving]
  - Thrombosis [Recovering/Resolving]
  - Wound [Not Recovered/Not Resolved]
  - Abscess [Recovered/Resolved]
  - Post procedural complication [Recovered/Resolved]
